FAERS Safety Report 7132827-X (Version None)
Quarter: 2010Q4

REPORT INFORMATION
  Report Type: 
  Country: None (occurrence: None)
  Receive Date: 20101202
  Receipt Date: 20101124
  Transmission Date: 20110411
  Serious: Yes (Other)
  Sender: FDA-Public Use
  Company Number: US-PFIZER INC-2010157330

PATIENT
  Sex: Female
  Weight: 75.283 kg

DRUGS (2)
  1. TOVIAZ [Suspect]
     Indication: POLLAKIURIA
     Dosage: 8 MG, UNK
     Route: 048
     Dates: start: 20101118, end: 20101118
  2. LEVOTHYROXINE [Concomitant]
     Indication: HYPOTHYROIDISM
     Dosage: 25 UNK, 1X/DAY

REACTIONS (4)
  - INSOMNIA [None]
  - MALAISE [None]
  - PAIN [None]
  - URINARY RETENTION [None]
